FAERS Safety Report 6307902-X (Version None)
Quarter: 2009Q3

REPORT INFORMATION
  Report Type: 
  Country: None (occurrence: None)
  Receive Date: 20090810
  Receipt Date: 20090805
  Transmission Date: 20100115
  Serious: Yes (Other)
  Sender: FDA-Public Use
  Company Number: 2009SP015075

PATIENT
  Age: 5 Year
  Sex: Female
  Weight: 22.6799 kg

DRUGS (2)
  1. CLARITIN [Suspect]
     Indication: EYE PRURITUS
     Dosage: 5 MG; QD; PO
     Route: 048
     Dates: start: 20090530, end: 20090710
  2. CLARITIN [Suspect]
     Indication: HYPERSENSITIVITY
     Dosage: 5 MG; QD; PO
     Route: 048
     Dates: start: 20090530, end: 20090710

REACTIONS (3)
  - AGGRESSION [None]
  - INSOMNIA [None]
  - PSYCHOMOTOR HYPERACTIVITY [None]
